FAERS Safety Report 15240739 (Version 1)
Quarter: 2018Q3

REPORT INFORMATION
  Report Type: Spontaneous
  Country: US (occurrence: US)
  Receive Date: 20180710
  Receipt Date: 20180710
  Transmission Date: 20181010
  Serious: Yes (Other)
  Sender: FDA-Public Use
  Company Number: None

PATIENT
  Age: 11 Year
  Sex: Male
  Weight: 38.1 kg

DRUGS (1)
  1. ATOMOXETINE 18MG PRASO LABS [Suspect]
     Active Substance: ATOMOXETINE

REACTIONS (4)
  - Product substitution issue [None]
  - Restlessness [None]
  - Frustration tolerance decreased [None]
  - Disturbance in attention [None]

NARRATIVE: CASE EVENT DATE: 20170914
